FAERS Safety Report 7293646-7 (Version None)
Quarter: 2011Q1

REPORT INFORMATION
  Report Type: 
  Country: None (occurrence: None)
  Receive Date: 20110215
  Receipt Date: 20110211
  Transmission Date: 20110831
  Serious: Yes (Death)
  Sender: FDA-Public Use
  Company Number: A0913541A

PATIENT
  Age: 65 Year
  Sex: Male

DRUGS (2)
  1. ADVAIR [Suspect]
     Route: 055
  2. VENTOLIN HFA [Suspect]
     Route: 055

REACTIONS (1)
  - DEATH [None]
